FAERS Safety Report 4352749-7 (Version None)
Quarter: 2004Q2

REPORT INFORMATION
  Report Type: 
  Country: None (occurrence: None)
  Receive Date: 20040429
  Receipt Date: 20040421
  Transmission Date: 20050107
  Serious: Yes (Death, Hospitalization, Other)
  Sender: FDA-Public Use
  Company Number: 2012272

PATIENT
  Age: 42 Year
  Sex: Male
  Weight: 93 kg

DRUGS (15)
  1. OXYCONTIN [Suspect]
     Dosage: SEE IMAGE
     Dates: start: 19991201
  2. DIAZEPAM [Suspect]
  3. OXAZEPAM [Suspect]
  4. TEMAZEPAM [Suspect]
  5. DIPHENHYDRAMINE HCL [Suspect]
  6. GABAPENTIN [Suspect]
  7. CLARITIN [Concomitant]
  8. ZOLOFT [Concomitant]
  9. ALTACE [Concomitant]
  10. ALLOPURINOL [Concomitant]
  11. DEPAKOTE [Concomitant]
  12. SOMA [Concomitant]
  13. RELAFEN [Concomitant]
  14. LORAZEPAM [Suspect]
  15. CANNABNOIDS(CANNABIS) [Suspect]

REACTIONS (10)
  - ACCIDENTAL OVERDOSE [None]
  - ASTHENIA [None]
  - BACK PAIN [None]
  - DRUG ABUSER [None]
  - ERECTILE DYSFUNCTION [None]
  - HAEMATEMESIS [None]
  - HEADACHE [None]
  - IRON DEFICIENCY ANAEMIA [None]
  - MALLORY-WEISS SYNDROME [None]
  - TACHYCARDIA [None]
